FAERS Safety Report 4340101-X (Version None)
Quarter: 2004Q2

REPORT INFORMATION
  Report Type: 
  Country: None (occurrence: None)
  Receive Date: 20040412
  Receipt Date: 20040405
  Transmission Date: 20050107
  Serious: Yes (Life-Threatening, Hospitalization)
  Sender: FDA-Public Use
  Company Number: 2004CG00414

PATIENT
  Age: 47 Year
  Sex: Male
  Weight: 45 kg

DRUGS (2)
  1. DIPRIVAN [Suspect]
     Indication: GENERAL ANAESTHESIA
     Dates: start: 20040217, end: 20040217
  2. SUFENTA [Suspect]
     Indication: ANAESTHESIA
     Dates: start: 20040217, end: 20040217

REACTIONS (4)
  - CONFUSIONAL STATE [None]
  - HEADACHE [None]
  - HYPERTHERMIA MALIGNANT [None]
  - PULMONARY OEDEMA [None]
